FAERS Safety Report 5743844-6 (Version None)
Quarter: 2008Q2

REPORT INFORMATION
  Report Type: 
  Country: None (occurrence: None)
  Receive Date: 20080516
  Receipt Date: 20080506
  Transmission Date: 20081010
  Serious: No
  Sender: FDA-Public Use
  Company Number: ADE2008-0180

PATIENT
  Age: 77 Year
  Sex: Female

DRUGS (2)
  1. METFORMIN HCL [Suspect]
     Dosage: 500MG QAM-PO
     Route: 048
     Dates: end: 20071201
  2. METFORMIN HCL [Suspect]
     Dosage: 1000MG QPM-PO
     Route: 048
     Dates: end: 20071201

REACTIONS (1)
  - RENAL IMPAIRMENT [None]
